FAERS Safety Report 5297860-1 (Version None)
Quarter: 2007Q2

REPORT INFORMATION
  Report Type: 
  Country: None (occurrence: None)
  Receive Date: 20070416
  Receipt Date: 20070404
  Transmission Date: 20071010
  Serious: Yes (Death, Hospitalization)
  Sender: FDA-Public Use
  Company Number: US-ELI_LILLY_AND_COMPANY-US200704001007

PATIENT
  Age: 31 Year
  Sex: Male

DRUGS (2)
  1. CYMBALTA [Suspect]
     Dosage: UNK MG, UNK
  2. ETHANOL [Concomitant]

REACTIONS (3)
  - DEATH [None]
  - JAUNDICE [None]
  - LIVER FUNCTION TEST ABNORMAL [None]
